FAERS Safety Report 16864306 (Version 2)
Quarter: 2019Q4

REPORT INFORMATION
  Report Type: Report from Study
  Country: None (occurrence: HU)
  Receive Date: 20190927
  Receipt Date: 20191014
  Transmission Date: 20200122
  Serious: Yes (Death, Life-Threatening, Hospitalization)
  Sender: FDA-Public Use
  Company Number: HU-ABBVIE-19K-076-2897132-00

PATIENT
  Age: 76 Year
  Sex: Male
  Weight: 80 kg

DRUGS (8)
  1. BISOPROLOL [Concomitant]
     Active Substance: BISOPROLOL
     Indication: HYPERTENSION
     Dosage: IN THE MORNING
     Route: 048
  2. CITALOPRAM [Concomitant]
     Active Substance: CITALOPRAM HYDROBROMIDE
     Indication: PRODUCT USED FOR UNKNOWN INDICATION
     Dosage: 0.5 TABLET A DAY
     Route: 048
  3. ALPRAZOLAM. [Concomitant]
     Active Substance: ALPRAZOLAM
     Indication: PRODUCT USED FOR UNKNOWN INDICATION
     Dosage: 0.5 TABLET A DAY
     Route: 048
  4. AMANTADINE. [Concomitant]
     Active Substance: AMANTADINE HYDROCHLORIDE
     Indication: PARKINSON^S DISEASE
     Route: 048
     Dates: start: 201803
  5. CORBILTA [Concomitant]
     Active Substance: CARBIDOPA\ENTACAPONE\LEVODOPA
     Indication: PARKINSON^S DISEASE
     Dosage: IN THE EVENING
     Route: 048
     Dates: start: 20190704
  6. DUODOPA [Suspect]
     Active Substance: CARBIDOPA\LEVODOPA
     Indication: PARKINSON^S DISEASE
     Dosage: MORNING DOSE 4.5 ML; CONTINUOUS DOSE 2.8 ML/H; EXTRA DOSE 1.3 ML
     Route: 050
     Dates: start: 20140707, end: 20190910
  7. ACETYLSALICYLIC ACID [Concomitant]
     Active Substance: ASPIRIN
     Indication: PROPHYLAXIS
     Route: 048
  8. LANSOPRAZOLE. [Concomitant]
     Active Substance: LANSOPRAZOLE
     Indication: PRODUCT USED FOR UNKNOWN INDICATION
     Dosage: IN THE MORNING
     Route: 048

REACTIONS (17)
  - General physical health deterioration [Not Recovered/Not Resolved]
  - Contusion [Recovering/Resolving]
  - Intentional medical device removal by patient [Unknown]
  - Myocardial ischaemia [Fatal]
  - Weight decreased [Not Recovered/Not Resolved]
  - Parkinson^s disease [Unknown]
  - Feeding disorder [Unknown]
  - Fall [Recovering/Resolving]
  - Myocardial necrosis [Fatal]
  - Arteriosclerosis coronary artery [Fatal]
  - Respiratory failure [Unknown]
  - Haematoma [Recovering/Resolving]
  - Disturbance in attention [Unknown]
  - Cognitive disorder [Unknown]
  - Decreased appetite [Not Recovered/Not Resolved]
  - Dysphagia [Not Recovered/Not Resolved]
  - Circulatory collapse [Fatal]

NARRATIVE: CASE EVENT DATE: 2014
